FAERS Safety Report 10528417 (Version 1)
Quarter: 2014Q4

REPORT INFORMATION
  Report Type: Spontaneous
  Country: US (occurrence: None)
  Receive Date: 20141016
  Receipt Date: 20141016
  Transmission Date: 20150528
  Serious: Yes (Hospitalization)
  Sender: FDA-Public Use
  Company Number: None

PATIENT
  Age: 68 Year
  Sex: Male
  Weight: 109.1 kg

DRUGS (1)
  1. LISINOPRIL. [Suspect]
     Active Substance: LISINOPRIL
     Indication: HYPERTENSION
     Route: 048
     Dates: start: 20140729, end: 20140827

REACTIONS (4)
  - Palpitations [None]
  - Blood urea increased [None]
  - Hyperkalaemia [None]
  - Blood creatinine increased [None]

NARRATIVE: CASE EVENT DATE: 20140827
